FAERS Safety Report 4496712-4 (Version None)
Quarter: 2004Q4

REPORT INFORMATION
  Report Type: 
  Country: None (occurrence: None)
  Receive Date: 20040923
  Receipt Date: 20040709
  Transmission Date: 20050328
  Serious: Yes (Disabling, Other)
  Sender: FDA-Public Use
  Company Number: WAES 0407USA00871

PATIENT
  Age: 49 Year
  Sex: Female
  Weight: 79.3795 kg

DRUGS (5)
  1. INVANZ [Suspect]
     Indication: DIVERTICULITIS
     Dosage: 1 GM/DAILY/IV
     Route: 042
     Dates: start: 20040630, end: 20040703
  2. LEXAPRO [Concomitant]
  3. PREVACID [Concomitant]
  4. GENERAL ANESTHESIA (UNSPECIFIED) [Concomitant]
  5. MORPHINE SULFATE [Concomitant]

REACTIONS (1)
  - RASH GENERALISED [None]
